FAERS Safety Report 10154849 (Version 3)
Quarter: 2014Q2

REPORT INFORMATION
  Report Type: Spontaneous
  Country: JP (occurrence: JP)
  Receive Date: 20140506
  Receipt Date: 20140605
  Transmission Date: 20141212
  Serious: Yes (Other)
  Sender: FDA-Public Use
  Company Number: PHHY2014JP052252

PATIENT
  Age: 52 Year
  Sex: Female

DRUGS (1)
  1. ZOMETA [Suspect]
     Indication: BREAST CANCER RECURRENT
     Dosage: 4 MG, UNK
     Route: 041

REACTIONS (3)
  - Atypical femur fracture [Recovered/Resolved]
  - Exostosis [Recovered/Resolved]
  - Pain [Unknown]
